FAERS Safety Report 8189884-1 (Version None)
Quarter: 2012Q1

REPORT INFORMATION
  Report Type: 
  Country: None (occurrence: None)
  Receive Date: 20120307
  Receipt Date: 20120222
  Transmission Date: 20120608
  Serious: Yes (Other)
  Sender: FDA-Public Use
  Company Number: ZA-BRISTOL-MYERS SQUIBB COMPANY-16428328

PATIENT
  Age: 32 Year
  Sex: Male

DRUGS (4)
  1. STAVUDINE [Suspect]
     Indication: HIV INFECTION
  2. EFAVIRENZ [Suspect]
     Indication: HIV INFECTION
  3. AMPHOTERICIN B [Suspect]
     Route: 042
  4. LAMIVUDINE (EPIVIR HBV) [Suspect]
     Indication: HIV INFECTION

REACTIONS (5)
  - HISTOPLASMOSIS DISSEMINATED [None]
  - IMMUNE RECONSTITUTION SYNDROME [None]
  - RENAL IMPAIRMENT [None]
  - HYPOKALAEMIA [None]
  - THROMBOPHLEBITIS [None]
